FAERS Safety Report 10542070 (Version 1)
Quarter: 2014Q4

REPORT INFORMATION
  Report Type: Spontaneous
  Country: CN (occurrence: CN)
  Receive Date: 20141024
  Receipt Date: 20141024
  Transmission Date: 20150529
  Serious: Yes (Other)
  Sender: FDA-Public Use
  Company Number: CN-BAUSCH-BL-2014-007544

PATIENT
  Age: 72 Year
  Sex: Female
  Weight: 54 kg

DRUGS (1)
  1. COMPOUND NEOMYCIN SULFATE EYE DROPS [Suspect]
     Active Substance: DEXAMETHASONE\NEOMYCIN SULFATE
     Indication: CONJUNCTIVITIS
     Route: 047
     Dates: start: 20130914, end: 20130920

REACTIONS (5)
  - Vomiting [Recovered/Resolved]
  - Vision blurred [None]
  - Nausea [Recovered/Resolved]
  - Eye pain [Recovered/Resolved]
  - Headache [Recovered/Resolved]

NARRATIVE: CASE EVENT DATE: 20130920
